FAERS Safety Report 4941843-5 (Version None)
Quarter: 2006Q1

REPORT INFORMATION
  Report Type: 
  Country: None (occurrence: None)
  Receive Date: 20060313
  Receipt Date: 20060118
  Transmission Date: 20060701
  Serious: Yes (Death, Hospitalization)
  Sender: FDA-Public Use
  Company Number: JP-GILEAD-2006-0009124

PATIENT
  Sex: Female

DRUGS (27)
  1. HEPSERA [Suspect]
     Indication: HEPATITIS B
     Route: 048
     Dates: start: 20050127, end: 20050701
  2. HEPSERA [Suspect]
     Indication: HEPATIC CIRRHOSIS
  3. ZEFFIX [Suspect]
     Indication: DRUG USE FOR UNKNOWN INDICATION
     Route: 048
     Dates: start: 20050117, end: 20050701
  4. OMEPRAZOLE [Concomitant]
  5. MAGNESIUM OXIDE [Concomitant]
  6. FRUSEMIDE [Concomitant]
  7. SPIRONOLACTONE [Concomitant]
  8. BERIZYM [Concomitant]
  9. FLUOROURACIL [Concomitant]
  10. INTERFERON [Concomitant]
  11. SOLITA-T NO. 1 [Concomitant]
  12. MORPHINE [Concomitant]
  13. ALBUMIN (HUMAN) [Concomitant]
  14. SOLITA-T NO.3 [Concomitant]
  15. CARBAZOCHROME [Concomitant]
  16. TRANEXAMIC ACID [Concomitant]
  17. MENATETRENONE [Concomitant]
  18. HUMAN SHORT-ACTING INSULIN [Concomitant]
  19. PHYSIO 35 [Concomitant]
  20. DEXTROSE [Concomitant]
  21. HYDROXYZINE HYDROCHLORIDE [Concomitant]
  22. VEEN D [Concomitant]
  23. VITAMEDIN [Concomitant]
  24. METOCLOPRAMIDE HYDROCHLORIDE [Concomitant]
  25. TPN [Concomitant]
  26. NEO-MINOPHAGEN C [Concomitant]
  27. MEDIJECT-NA [Concomitant]

REACTIONS (1)
  - ASCITES [None]
